FAERS Safety Report 6606840-2 (Version None)
Quarter: 2010Q1

REPORT INFORMATION
  Report Type: 
  Country: None (occurrence: None)
  Receive Date: 20100226
  Receipt Date: 20090213
  Transmission Date: 20100710
  Serious: No
  Sender: FDA-Public Use
  Company Number: US-ALLERGAN-0901960US

PATIENT
  Age: 47 Year
  Sex: Female

DRUGS (5)
  1. BOTOX [Suspect]
     Indication: DYSTONIA
     Dosage: 100 UNITS, SINGLE
     Route: 030
     Dates: start: 20090209, end: 20090209
  2. LEVOXYL [Concomitant]
  3. WELLBUTRIN [Concomitant]
     Indication: ANTIDEPRESSANT THERAPY
  4. WELLBUTRIN [Concomitant]
  5. BIRTH CONTROL DRUG [Concomitant]

REACTIONS (2)
  - FINGER DEFORMITY [None]
  - MUSCULAR WEAKNESS [None]
